FAERS Safety Report 25527115 (Version 1)
Quarter: 2025Q3

REPORT INFORMATION
  Report Type: Report from Study
  Country: CA (occurrence: CA)
  Receive Date: 20250708
  Receipt Date: 20250708
  Transmission Date: 20251020
  Serious: Yes (Other)
  Sender: TEVA
  Company Number: CA-TEVA-VS-3349321

PATIENT
  Age: 41 Year
  Sex: Female

DRUGS (1)
  1. AMBRISENTAN [Suspect]
     Active Substance: AMBRISENTAN
     Indication: Pulmonary arterial hypertension
     Route: 048

REACTIONS (5)
  - Dizziness [Recovered/Resolved]
  - Headache [Recovered/Resolved]
  - Gastrointestinal disorder [Recovered/Resolved]
  - Flushing [Recovered/Resolved]
  - Migraine [Recovered/Resolved]
